FAERS Safety Report 8625595-3 (Version None)
Quarter: 2012Q3

REPORT INFORMATION
  Report Type: 
  Country: None (occurrence: None)
  Receive Date: 20120827
  Receipt Date: 20120820
  Transmission Date: 20120928
  Serious: Yes (Other)
  Sender: FDA-Public Use
  Company Number: US-PFIZER INC-2012204792

PATIENT
  Sex: Female

DRUGS (1)
  1. GLUCOTROL XL [Suspect]
     Dosage: UNK

REACTIONS (1)
  - CARDIAC FAILURE CONGESTIVE [None]
